FAERS Safety Report 18423903 (Version 1)
Quarter: 2020Q4

REPORT INFORMATION
  Report Type: Spontaneous
  Country: US (occurrence: US)
  Receive Date: 20201025
  Receipt Date: 20201025
  Transmission Date: 20210114
  Serious: No
  Sender: FDA-Public Use
  Company Number: US-AMGEN-USASP2020168322

PATIENT

DRUGS (5)
  1. XGEVA [Suspect]
     Active Substance: DENOSUMAB
     Indication: BREAST CANCER
     Dosage: UNK
     Route: 065
  2. FLU [Concomitant]
     Active Substance: INFLUENZA VIRUS VACCINE
  3. IBRANCE [Concomitant]
     Active Substance: PALBOCICLIB
     Dosage: 100 MILLIGRAM, QD
     Route: 048
     Dates: start: 201909, end: 202003
  4. IBRANCE [Concomitant]
     Active Substance: PALBOCICLIB
     Indication: BREAST CANCER
     Dosage: 125 MILLIGRAM, QD (21 DAYS ON, 7 OFF)
     Dates: start: 201905
  5. IBRANCE [Concomitant]
     Active Substance: PALBOCICLIB
     Dosage: 100 MILLIGRAM, QD
     Route: 048
     Dates: start: 202007

REACTIONS (4)
  - Alopecia [Unknown]
  - Pain [Unknown]
  - Ear pain [Unknown]
  - Weight decreased [Unknown]

NARRATIVE: CASE EVENT DATE: 2020
